FAERS Safety Report 6259397-2 (Version None)
Quarter: 2009Q3

REPORT INFORMATION
  Report Type: 
  Country: None (occurrence: None)
  Receive Date: 20090706
  Receipt Date: 20090630
  Transmission Date: 20100115
  Serious: Yes (Death)
  Sender: FDA-Public Use
  Company Number: 2009SP014232

PATIENT
  Age: 66 Year
  Sex: Male

DRUGS (2)
  1. TEMODAR [Suspect]
     Indication: PANCREATIC NEOPLASM
     Dosage: PO
     Route: 048
  2. WARFARIN [Suspect]
     Indication: DRUG USE FOR UNKNOWN INDICATION

REACTIONS (4)
  - CEREBRAL HAEMORRHAGE [None]
  - LIVER DISORDER [None]
  - LUNG DISORDER [None]
  - PANCREATIC DISORDER [None]
